FAERS Safety Report 19998784 (Version 2)
Quarter: 2021Q4

REPORT INFORMATION
  Report Type: Other
  Country: US (occurrence: US)
  Receive Date: 20211027
  Receipt Date: 20211026
  Transmission Date: 20220303
  Serious: No
  Sender: FDA-Public Use
  Company Number: US-ROCHE-2728723

PATIENT
  Age: 36 Year
  Sex: Female

DRUGS (3)
  1. COBIMETINIB [Suspect]
     Active Substance: COBIMETINIB
     Indication: Chronic myelomonocytic leukaemia
     Route: 065
  2. COBIMETINIB [Suspect]
     Active Substance: COBIMETINIB
     Route: 065
  3. COBIMETINIB [Suspect]
     Active Substance: COBIMETINIB
     Route: 065

REACTIONS (1)
  - Dermatitis acneiform [Recovered/Resolved]
